FAERS Safety Report 20815254 (Version 1)
Quarter: 2022Q2

REPORT INFORMATION
  Report Type: Report from Study
  Country: NL (occurrence: None)
  Receive Date: 20220511
  Receipt Date: 20220511
  Transmission Date: 20220721
  Serious: Yes (Hospitalization)
  Sender: FDA-Public Use
  Company Number: 2022A177275

PATIENT
  Age: 54 Year
  Sex: Female
  Weight: 60 kg

DRUGS (5)
  1. CISPLATIN [Suspect]
     Active Substance: CISPLATIN
     Indication: Non-small cell lung cancer
     Dosage: 100.0MG ONCE/SINGLE ADMINISTRATION
     Route: 042
     Dates: start: 20220420, end: 20220420
  2. DURVALUMAB [Suspect]
     Active Substance: DURVALUMAB
     Indication: Non-small cell lung cancer
     Dosage: 1120.0MG ONCE/SINGLE ADMINISTRATION
     Route: 042
     Dates: start: 20220420, end: 20220420
  3. TRASTUZUMAB DERUXTECAN [Suspect]
     Active Substance: TRASTUZUMAB DERUXTECAN
     Indication: Non-small cell lung cancer
     Dosage: 264.0MG ONCE/SINGLE ADMINISTRATION
     Route: 042
     Dates: start: 20220420, end: 20220420
  4. PREDNISOLONE [Concomitant]
     Active Substance: PREDNISOLONE
     Indication: Fatigue
     Route: 048
     Dates: start: 20220429, end: 20220502
  5. PREDNISOLONE [Concomitant]
     Active Substance: PREDNISOLONE
     Indication: Fatigue
     Route: 048
     Dates: start: 20220503

REACTIONS (1)
  - Febrile neutropenia [Not Recovered/Not Resolved]

NARRATIVE: CASE EVENT DATE: 20220505
